FAERS Safety Report 21736817 (Version 1)
Quarter: 2022Q4

REPORT INFORMATION
  Report Type: Other
  Country: US (occurrence: US)
  Receive Date: 20221216
  Receipt Date: 20221216
  Transmission Date: 20230113
  Serious: Yes (Other)
  Sender: FDA-Public Use
  Company Number: US-ALVOGEN-2022088800

PATIENT
  Age: 37 Year
  Sex: Male

DRUGS (1)
  1. GABAPENTIN [Suspect]
     Active Substance: GABAPENTIN
     Indication: Drug use disorder

REACTIONS (5)
  - Drug dependence [Recovering/Resolving]
  - Drug use disorder [Recovering/Resolving]
  - Intentional product misuse [Unknown]
  - Drug withdrawal syndrome [Recovering/Resolving]
  - Off label use [Unknown]
